FAERS Safety Report 7515295-5 (Version None)
Quarter: 2011Q2

REPORT INFORMATION
  Report Type: 
  Country: None (occurrence: None)
  Receive Date: 20110601
  Receipt Date: 20110523
  Transmission Date: 20111010
  Serious: Yes (Other)
  Sender: FDA-Public Use
  Company Number: PHHY2011US25105

PATIENT
  Sex: Female

DRUGS (1)
  1. GILENYA [Suspect]
     Indication: RELAPSING-REMITTING MULTIPLE SCLEROSIS
     Dosage: 0.5 MG, QD
     Route: 048
     Dates: start: 20110106

REACTIONS (5)
  - UPPER RESPIRATORY TRACT INFECTION [None]
  - WHITE BLOOD CELL DISORDER [None]
  - COUGH [None]
  - SINUSITIS [None]
  - BRONCHITIS [None]
